FAERS Safety Report 6195636-4 (Version None)
Quarter: 2009Q2

REPORT INFORMATION
  Report Type: 
  Country: None (occurrence: None)
  Receive Date: 20090519
  Receipt Date: 20090512
  Transmission Date: 20091009
  Serious: Yes (Other)
  Sender: FDA-Public Use
  Company Number: JP-ABBOTT-09P-087-0573091-00

PATIENT
  Age: 34 Year
  Sex: Male

DRUGS (4)
  1. CLARITHROMYCIN [Suspect]
     Indication: BRONCHITIS
     Route: 048
     Dates: start: 20090411, end: 20090415
  2. CRAVIT [Suspect]
     Indication: BRONCHITIS
     Route: 048
     Dates: start: 20090301, end: 20090411
  3. ONON [Concomitant]
     Indication: SEASONAL ALLERGY
     Dates: end: 20090415
  4. PEMILASTON [Concomitant]
     Indication: SEASONAL ALLERGY
     Dates: end: 20090415

REACTIONS (5)
  - ENTEROCOLITIS [None]
  - FEELING ABNORMAL [None]
  - INTENTION TREMOR [None]
  - MUSCULAR WEAKNESS [None]
  - VISUAL IMPAIRMENT [None]
